FAERS Safety Report 8016140-4 (Version None)
Quarter: 2011Q4

REPORT INFORMATION
  Report Type: 
  Country: None (occurrence: None)
  Receive Date: 20111230
  Receipt Date: 20111220
  Transmission Date: 20120403
  Serious: Yes (Hospitalization, Other)
  Sender: FDA-Public Use
  Company Number: US-AMGEN-USASP2011067902

PATIENT
  Age: 16 Year
  Sex: Female
  Weight: 56 kg

DRUGS (2)
  1. ARANESP [Suspect]
     Indication: ANAEMIA
     Dosage: 150 MUG, QWK
     Dates: start: 20111202
  2. ACCUTANE [Concomitant]
     Indication: NEUROBLASTOMA

REACTIONS (2)
  - PLEURAL EFFUSION [None]
  - HAEMOGLOBIN DECREASED [None]
